FAERS Safety Report 15863942 (Version 5)
Quarter: 2019Q1

REPORT INFORMATION
  Report Type: Spontaneous
  Country: PT (occurrence: PT)
  Receive Date: 20190124
  Receipt Date: 20190319
  Transmission Date: 20190417
  Serious: Yes (Hospitalization, Other)
  Sender: FDA-Public Use
  Company Number: PT-GLAXOSMITHKLINE-PT2019005184

PATIENT
  Age: 75 Year
  Sex: Female

DRUGS (3)
  1. DIAZEPAM. [Suspect]
     Active Substance: DIAZEPAM
     Indication: BACK PAIN
     Dosage: 1 DF, QD
     Route: 030
  2. DICLOFENAC [Suspect]
     Active Substance: DICLOFENAC
     Indication: BACK PAIN
     Dosage: 1 DF, UNK
     Route: 030
  3. THIOCOLCHICOSIDE [Suspect]
     Active Substance: THIOCOLCHICOSIDE
     Indication: BACK PAIN
     Dosage: 1 DF, UNK
     Route: 030

REACTIONS (12)
  - Hyperchromic anaemia [Unknown]
  - Asthenia [Unknown]
  - Vomiting [Recovering/Resolving]
  - Condition aggravated [Recovering/Resolving]
  - Diarrhoea [Recovering/Resolving]
  - Haemolytic anaemia [Recovered/Resolved]
  - Anaemia macrocytic [Recovered/Resolved]
  - Reticulocytosis [Recovering/Resolving]
  - Autoimmune haemolytic anaemia [Recovered/Resolved]
  - Haptoglobin decreased [Recovering/Resolving]
  - Extravascular haemolysis [Recovering/Resolving]
  - Hyperbilirubinaemia [Recovering/Resolving]
